FAERS Safety Report 20695870 (Version 1)
Quarter: 2022Q2

REPORT INFORMATION
  Report Type: Report from Study
  Country: IN (occurrence: IN)
  Receive Date: 20220411
  Receipt Date: 20220411
  Transmission Date: 20220721
  Serious: Yes (Hospitalization, Other)
  Sender: FDA-Public Use
  Company Number: IN-NOVARTISPH-NVSC2020IN334809

PATIENT
  Age: 31 Year
  Sex: Male

DRUGS (40)
  1. SIMULECT [Suspect]
     Active Substance: BASILIXIMAB
     Indication: Renal transplant
     Dosage: 20 MG
     Route: 042
     Dates: start: 20201212
  2. SIMULECT [Suspect]
     Active Substance: BASILIXIMAB
     Dosage: 20 UNK
     Route: 042
  3. TACROLIMUS [Suspect]
     Active Substance: TACROLIMUS
     Indication: Product used for unknown indication
     Route: 065
  4. MYCOPHENOLATE SODIUM [Suspect]
     Active Substance: MYCOPHENOLATE SODIUM
     Indication: Product used for unknown indication
     Route: 065
  5. RITUXIMAB [Suspect]
     Active Substance: RITUXIMAB
     Indication: Product used for unknown indication
     Route: 065
  6. BORTEZOMIB [Suspect]
     Active Substance: BORTEZOMIB
     Indication: Product used for unknown indication
     Dosage: UNK
     Route: 058
     Dates: start: 20201225
  7. PIPERACILLIN AND TAZOBACTAM [Suspect]
     Active Substance: PIPERACILLIN SODIUM\TAZOBACTAM SODIUM
     Indication: Antibiotic prophylaxis
     Dosage: GRAM POSITIVE AND NEGATIVE ORGANISMS
     Route: 065
  8. METHYLPREDNISOLONE [Suspect]
     Active Substance: METHYLPREDNISOLONE
     Indication: Product used for unknown indication
     Dosage: 1 DOSAGE FORM
     Route: 065
  9. HEPARIN [Concomitant]
     Active Substance: HEPARIN SODIUM
     Indication: Product used for unknown indication
     Route: 065
  10. PAPAVERINE [Concomitant]
     Active Substance: PAPAVERINE
     Indication: Product used for unknown indication
     Route: 065
  11. VALGANCICLOVIR [Concomitant]
     Active Substance: VALGANCICLOVIR
     Indication: Product used for unknown indication
     Dosage: UNK
     Route: 065
     Dates: start: 20201214
  12. PAN [Concomitant]
     Indication: Product used for unknown indication
     Dosage: UNK, BID X 4 DAYS
     Route: 065
  13. PAN [Concomitant]
     Dosage: UNK, BID X 11 DAYS
     Route: 065
  14. NEBI [Concomitant]
     Indication: Product used for unknown indication
     Dosage: UNK, BID X 4 DAYS
     Route: 065
  15. NEBI [Concomitant]
     Dosage: 5 MG-O-2.5 MG X I I DAYS
     Route: 065
  16. CHLORHEXIDINE [Concomitant]
     Active Substance: CHLORHEXIDINE
     Indication: Product used for unknown indication
     Dosage: UNK, BID X 14 DAYS
     Route: 048
  17. SOLU-MEDROL [Concomitant]
     Active Substance: METHYLPREDNISOLONE SODIUM SUCCINATE
     Indication: Product used for unknown indication
     Dosage: UNK, QD, 3 DAYS
     Route: 042
  18. PIPZO [Concomitant]
     Indication: Product used for unknown indication
     Dosage: 2.25 GM IV TDS X 3 DAYS
     Route: 042
  19. ONDANSETRON HYDROCHLORIDE [Concomitant]
     Active Substance: ONDANSETRON HYDROCHLORIDE
     Indication: Product used for unknown indication
     Dosage: UNK, TID (1 DAY)
     Route: 042
  20. ONDANSETRON HYDROCHLORIDE [Concomitant]
     Active Substance: ONDANSETRON HYDROCHLORIDE
     Dosage: UNK, PRN X 5 DAYS
     Route: 065
  21. MACAINE [Concomitant]
     Indication: Product used for unknown indication
     Dosage: UNK, BID X 2 DAYS
     Route: 065
  22. MACAINE [Concomitant]
     Dosage: UNK, TID X 2 DAYS
     Route: 065
  23. DOMSTAL [Concomitant]
     Indication: Product used for unknown indication
     Dosage: 0.5 DOSAGE FORM, TID (4 DAYS)
     Route: 065
  24. MEROPENEM [Concomitant]
     Active Substance: MEROPENEM
     Indication: Product used for unknown indication
     Dosage: UNK, TID (8 DAYS)
     Route: 065
  25. AD [Concomitant]
     Indication: Product used for unknown indication
     Dosage: UNK, TID (6 DAYS)
     Route: 065
  26. VIBACT [Concomitant]
     Indication: Product used for unknown indication
     Dosage: UNK, TID (10 DAYS)
     Route: 065
  27. RIFAXIMIN [Concomitant]
     Active Substance: RIFAXIMIN
     Indication: Product used for unknown indication
     Dosage: UNK, BID (11 DAYS)
     Route: 065
  28. TAMIN [Concomitant]
     Indication: Product used for unknown indication
     Dosage: UNK, Q6H (1 DAY)
     Route: 042
  29. TAMIN [Concomitant]
     Dosage: UNK, Q8H (2 DAYS)
     Route: 042
  30. TAMIN [Concomitant]
     Dosage: UNK, PRN (1 DAY)
     Route: 042
  31. ZYTANIX [Concomitant]
     Indication: Product used for unknown indication
     Dosage: UNK, BID (2 DAYS)
     Route: 065
  32. ALDACTONE [Concomitant]
     Active Substance: SPIRONOLACTONE
     Indication: Product used for unknown indication
     Dosage: UNK, 25 MG, BID (1 DAY)
     Route: 065
  33. ALDACTONE [Concomitant]
     Active Substance: SPIRONOLACTONE
     Dosage: UNK, TID (1 DAY)
     Route: 065
  34. ALDACTONE [Concomitant]
     Active Substance: SPIRONOLACTONE
     Dosage: UNK, BID, 50 MG (3 DAYS)
     Route: 065
  35. PREDNISOLONE [Concomitant]
     Active Substance: PREDNISOLONE
     Indication: Product used for unknown indication
     Dosage: UNK, QD (FOR 7 DAYS)
     Route: 065
  36. VINTOR [Concomitant]
     Indication: Product used for unknown indication
     Route: 058
  37. DILTIAZEM [Concomitant]
     Active Substance: DILTIAZEM
     Indication: Product used for unknown indication
     Dosage: 0.5 DOSAGE FORM, BID
     Route: 065
  38. COTRIMOXAZOLE [Concomitant]
     Active Substance: SULFAMETHOXAZOLE\TRIMETHOPRIM
     Indication: Product used for unknown indication
     Dosage: 0.5 DOSAGE FORM (BED TIME)
     Route: 065
  39. ARKAMIN [Concomitant]
     Indication: Product used for unknown indication
     Dosage: UNK, BID
     Route: 048
  40. BACTRIM [Concomitant]
     Active Substance: SULFAMETHOXAZOLE\TRIMETHOPRIM
     Indication: Product used for unknown indication
     Dosage: 0.5 DOSAGE FORM, QD
     Route: 065

REACTIONS (5)
  - Kidney transplant rejection [Unknown]
  - Transplant rejection [Unknown]
  - Blood creatinine decreased [Unknown]
  - Urine output decreased [Recovering/Resolving]
  - Weight increased [Unknown]

NARRATIVE: CASE EVENT DATE: 20201213
